FAERS Safety Report 17239413 (Version 5)
Quarter: 2020Q3

REPORT INFORMATION
  Report Type: Report from Study
  Country: US (occurrence: US)
  Receive Date: 20200106
  Receipt Date: 20200819
  Transmission Date: 20201102
  Serious: Yes (Other)
  Sender: FDA-Public Use
  Company Number: NVSC2020US000724

PATIENT
  Sex: Male

DRUGS (2)
  1. COSENTYX [Suspect]
     Active Substance: SECUKINUMAB
     Indication: PSORIATIC ARTHROPATHY
     Dosage: 300 MG, Q4W
     Route: 058
     Dates: start: 20200314
  2. COSENTYX [Suspect]
     Active Substance: SECUKINUMAB
     Indication: PSORIASIS
     Dosage: 150 MG, ONCE WEEKLY FOR 5 WEEKS (LOADING), THEN ONCE EVERY 4 WEEKS (MAINTENANCE)
     Route: 058
     Dates: start: 20190928

REACTIONS (6)
  - Therapeutic product effect delayed [Unknown]
  - Psoriatic arthropathy [Recovering/Resolving]
  - Joint stiffness [Unknown]
  - Drug ineffective [Unknown]
  - Psoriasis [Recovering/Resolving]
  - Erythema [Unknown]
